FAERS Safety Report 6583387-3 (Version None)
Quarter: 2010Q1

REPORT INFORMATION
  Report Type: 
  Country: None (occurrence: None)
  Receive Date: 20100216
  Receipt Date: 20100203
  Transmission Date: 20100710
  Serious: Yes (Hospitalization, Other)
  Sender: FDA-Public Use
  Company Number: US-ELI_LILLY_AND_COMPANY-US201001000423

PATIENT
  Age: 91 Year
  Sex: Female

DRUGS (10)
  1. FORTEO [Suspect]
     Indication: OSTEOPOROSIS
  2. WARFARIN SODIUM [Concomitant]
  3. OMEPRAZOLE [Concomitant]
  4. LIPITOR [Concomitant]
  5. BENICAR [Concomitant]
  6. HYDROCHLOROTHIAZIDE [Concomitant]
  7. ARICEPT [Concomitant]
  8. VESICARE [Concomitant]
  9. SERTRALINE HCL [Concomitant]
  10. NAMENDA [Concomitant]

REACTIONS (6)
  - CONFUSIONAL STATE [None]
  - DIVERTICULUM [None]
  - FALL [None]
  - GASTROINTESTINAL HAEMORRHAGE [None]
  - HAEMORRHOIDS [None]
  - PNEUMONIA [None]
